FAERS Safety Report 4601016-2 (Version None)
Quarter: 2005Q1

REPORT INFORMATION
  Report Type: 
  Country: None (occurrence: None)
  Receive Date: 20050127
  Receipt Date: 20041110
  Transmission Date: 20050727
  Serious: No
  Sender: FDA-Public Use
  Company Number: USA041183761

PATIENT
  Age: 15 Year
  Sex: Male

DRUGS (3)
  1. STRATTERA [Suspect]
  2. LEXAPRO [Concomitant]
  3. ALLEGRA [Concomitant]

REACTIONS (2)
  - HEADACHE [None]
  - TIC [None]
